FAERS Safety Report 7051593-X (Version None)
Quarter: 2010Q4

REPORT INFORMATION
  Report Type: 
  Country: None (occurrence: None)
  Receive Date: 20101019
  Receipt Date: 20101006
  Transmission Date: 20110411
  Serious: Yes (Death, Other)
  Sender: FDA-Public Use
  Company Number: JP-ROCHE-727043

PATIENT
  Sex: Male
  Weight: 62 kg

DRUGS (5)
  1. XELODA [Suspect]
     Indication: COLON CANCER
     Dosage: REPOPRTED: XELODA 300.
     Route: 048
     Dates: start: 20100820, end: 20100902
  2. MAGNESIUM OXIDE [Concomitant]
     Route: 048
     Dates: start: 20100809
  3. ZYLORIC [Concomitant]
     Route: 048
  4. ACTOS [Concomitant]
     Route: 048
  5. KRESTIN [Concomitant]
     Dosage: REPORTED AS KRESTIN(OBTAINED FROM CORIOLUS VERSICOLOR). FORM: POWDERED MEDICINE
     Route: 048
     Dates: start: 20100820, end: 20100902

REACTIONS (7)
  - DECREASED APPETITE [None]
  - DISSEMINATED INTRAVASCULAR COAGULATION [None]
  - FEBRILE NEUTROPENIA [None]
  - PNEUMONIA STAPHYLOCOCCAL [None]
  - RENAL FAILURE ACUTE [None]
  - THROMBOCYTOPENIA [None]
  - WHITE BLOOD CELL COUNT DECREASED [None]
